FAERS Safety Report 9160184 (Version 1)
Quarter: 2013Q1

REPORT INFORMATION
  Report Type: Spontaneous
  Country: CH (occurrence: None)
  Receive Date: 20130220
  Receipt Date: 20130220
  Transmission Date: 20140127
  Serious: Yes (Hospitalization)
  Sender: FDA-Public Use
  Company Number: SYM-2013-00482

PATIENT
  Age: 70 Year
  Sex: Male

DRUGS (8)
  1. WELLBUTRIN (BUPROPION HYDROCHLORIDE) (BUPROPION HYDROCHLORIDE) [Suspect]
     Indication: DEPRESSION
     Route: 048
     Dates: start: 20121119, end: 20130106
  2. ASPIRIN (ACETYLSALICYLIC ACID) (UNKNOWN) (ACETYLSALICYLIC ACID) [Concomitant]
  3. ATACAND PLUS (BLOPRESS PLUS) (UNKNOWN) (HYDROCHLOROTHIAZIDE, CANDESARTAN CILEXETIL) [Concomitant]
  4. COVERSUM COMBI (BI PREDONIUM) (UNKNOWN) (INDAPAMIDE, PERINDOPRIL ERBUMINE) [Concomitant]
  5. ATORVASTATIN CALCIUM (ATORVASTATIN CALCIUM) (UNKNOWN) (ATORVASTATIN CALCIUM) [Concomitant]
  6. SODIUM CHONDROITIN SULFAT (OTHER THERAPEUTIC PRODUCTS) [Concomitant]
  7. TAMSULOSIN HCL (TAMSULOSIN HYDROCHLORIDE) (UNKNOWN) (TAMSULOSIN HYDROCHLORIDE) [Concomitant]
  8. TRIMIPRAMINE MALEATE (TRMIPRAMINE MALEATE) (UNKNOWN) (TRIMIPRAMINE MALEATE) [Concomitant]

REACTIONS (5)
  - Fatigue [None]
  - Dyspnoea [None]
  - Myocardial infarction [None]
  - Angina unstable [None]
  - Device occlusion [None]
